FAERS Safety Report 7336196-1 (Version None)
Quarter: 2011Q1

REPORT INFORMATION
  Report Type: 
  Country: None (occurrence: None)
  Receive Date: 20110301
  Receipt Date: 20110301
  Transmission Date: 20110831
  Serious: Yes (Life-Threatening, Hospitalization)
  Sender: FDA-Public Use
  Company Number: None

PATIENT
  Age: 33 Year
  Sex: Female
  Weight: 56.6996 kg

DRUGS (1)
  1. BUPROPION 100MG WELBUTRIN XL [Suspect]
     Indication: POSTPARTUM DEPRESSION
     Dosage: 100 MG 2 TIMES DAILY 2X DAILY PO
     Route: 048
     Dates: start: 20080922, end: 20101218

REACTIONS (6)
  - CONFUSIONAL STATE [None]
  - HEADACHE [None]
  - BLOOD PRESSURE DECREASED [None]
  - CONVULSION [None]
  - CHILLS [None]
  - MEMORY IMPAIRMENT [None]
